FAERS Safety Report 5501109-1 (Version None)
Quarter: 2007Q4

REPORT INFORMATION
  Report Type: 
  Country: None (occurrence: None)
  Receive Date: 20071029
  Receipt Date: 20071017
  Transmission Date: 20080405
  Serious: Yes (Other)
  Sender: FDA-Public Use
  Company Number: US-PFIZER INC-2007071150

PATIENT
  Sex: Female
  Weight: 120.5 kg

DRUGS (13)
  1. CHANTIX [Suspect]
     Indication: SMOKING CESSATION THERAPY
     Dates: start: 20070802, end: 20071015
  2. DESIPRAMINE HCL [Concomitant]
  3. SEROQUEL [Concomitant]
  4. ABILIFY [Concomitant]
  5. TRILEPTAL [Concomitant]
  6. TRICOR [Concomitant]
  7. WELLBUTRIN [Concomitant]
  8. ACCUPRIL [Concomitant]
  9. ZETIA [Concomitant]
  10. LEVOXYL [Concomitant]
  11. LASIX [Concomitant]
  12. GLUCOPHAGE [Concomitant]
  13. VITAMIN CAP [Concomitant]

REACTIONS (6)
  - DIZZINESS [None]
  - FEELING ABNORMAL [None]
  - FEELING OF BODY TEMPERATURE CHANGE [None]
  - NAUSEA [None]
  - PARAESTHESIA [None]
  - PARANOIA [None]
